FAERS Safety Report 22224847 (Version 1)
Quarter: 2023Q2

REPORT INFORMATION
  Report Type: Spontaneous
  Country: IT (occurrence: IT)
  Receive Date: 20230418
  Receipt Date: 20230418
  Transmission Date: 20230722
  Serious: Yes (Other)
  Sender: FDA-Public Use
  Company Number: None

PATIENT
  Age: 59 Year
  Sex: Male
  Weight: 74 kg

DRUGS (2)
  1. PACLITAXEL [Suspect]
     Active Substance: PACLITAXEL
     Indication: Oesophageal adenocarcinoma stage IV
     Dosage: 108 MICROGRAM, Q28D (CYCLIC)
     Route: 042
     Dates: start: 20221121, end: 20221219
  2. RAMUCIRUMAB [Suspect]
     Active Substance: RAMUCIRUMAB
     Indication: Oesophageal adenocarcinoma stage IV
     Dosage: 592 MILLIGRAM, Q28D (CYCLIC)
     Route: 042
     Dates: start: 20221121, end: 20221219

REACTIONS (4)
  - Neutropenia [Recovering/Resolving]
  - Abdominal pain [Recovered/Resolved]
  - Constipation [Recovered/Resolved]
  - Proteinuria [Not Recovered/Not Resolved]

NARRATIVE: CASE EVENT DATE: 20221123
